FAERS Safety Report 13521286 (Version 3)
Quarter: 2017Q2

REPORT INFORMATION
  Report Type: Spontaneous
  Country: US (occurrence: US)
  Receive Date: 20170508
  Receipt Date: 20170628
  Transmission Date: 20170830
  Serious: No
  Sender: FDA-Public Use
  Company Number: US-PFIZER INC-2017192569

PATIENT
  Sex: Female

DRUGS (1)
  1. XELJANZ XR [Suspect]
     Active Substance: TOFACITINIB CITRATE
     Dosage: 11 MG, UNK

REACTIONS (12)
  - Blood alkaline phosphatase abnormal [Unknown]
  - Urine abnormality [Unknown]
  - Oxygen saturation decreased [Unknown]
  - Joint effusion [Unknown]
  - Arthralgia [Unknown]
  - Full blood count abnormal [Unknown]
  - Joint range of motion decreased [Unknown]
  - Blood albumin abnormal [Unknown]
  - Chondropathy [Unknown]
  - Joint warmth [Unknown]
  - Red blood cell sedimentation rate abnormal [Unknown]
  - C-reactive protein abnormal [Unknown]
